FAERS Safety Report 7049789-6 (Version None)
Quarter: 2010Q4

REPORT INFORMATION
  Report Type: 
  Country: None (occurrence: None)
  Receive Date: 20101013
  Receipt Date: 20101006
  Transmission Date: 20110411
  Serious: Yes (Other)
  Sender: FDA-Public Use
  Company Number: 2010MA002938

PATIENT
  Sex: Female

DRUGS (2)
  1. ALPRAZOLAM [Suspect]
     Dosage: 0.25 MG;Q8H;PO
     Route: 048
  2. DEPO-MEDROL [Concomitant]

REACTIONS (4)
  - DRUG DEPENDENCE [None]
  - DRUG INEFFECTIVE [None]
  - VOMITING [None]
  - WITHDRAWAL SYNDROME [None]
